FAERS Safety Report 5852906-4 (Version None)
Quarter: 2008Q3

REPORT INFORMATION
  Report Type: 
  Country: None (occurrence: None)
  Receive Date: 20080815
  Receipt Date: 20080314
  Transmission Date: 20090109
  Serious: Yes (Disabling)
  Sender: FDA-Public Use
  Company Number: 08H-163-0314016-00

PATIENT
  Age: 83 Year
  Sex: Female
  Weight: 74.8435 kg

DRUGS (4)
  1. VANCOMYCIN HYDROCHLORIDE [Suspect]
     Indication: PROPHYLAXIS
     Dosage: ONCE, INTRAVENOUS ; TWICE, INTRAVENOUS
     Route: 042
     Dates: start: 20070419, end: 20070419
  2. VANCOMYCIN HYDROCHLORIDE [Suspect]
     Indication: PROPHYLAXIS
     Dosage: ONCE, INTRAVENOUS ; TWICE, INTRAVENOUS
     Route: 042
     Dates: start: 20070420, end: 20070420
  3. LISINOPRIL [Concomitant]
  4. SYNTHROID [Concomitant]

REACTIONS (1)
  - DEAFNESS UNILATERAL [None]
